FAERS Safety Report 5686784-3 (Version None)
Quarter: 2008Q1

REPORT INFORMATION
  Report Type: 
  Country: None (occurrence: None)
  Receive Date: 20080328
  Receipt Date: 20070912
  Transmission Date: 20080703
  Serious: No
  Sender: FDA-Public Use
  Company Number: US-BAYER-US-2007-017170

PATIENT
  Age: 43 Year
  Sex: Female
  Weight: 67 kg

DRUGS (11)
  1. MIRENA [Suspect]
     Indication: MENORRHAGIA
     Route: 015
     Dates: start: 20070410, end: 20070620
  2. TRADON [Suspect]
  3. ZOLOFT [Concomitant]
  4. TRAZODIL [Concomitant]
  5. WELLBUTRIN [Concomitant]
  6. TOBREX [Concomitant]
  7. FLONASE [Concomitant]
     Indication: SINUS DISORDER
  8. ZYPREXA [Concomitant]
  9. TOBRAMAX [Concomitant]
  10. TRANXENE [Concomitant]
  11. CRESTOR [Concomitant]

REACTIONS (12)
  - ABDOMINAL DISTENSION [None]
  - ANXIETY [None]
  - BREAST TENDERNESS [None]
  - DEPRESSION [None]
  - FATIGUE [None]
  - INTRA-UTERINE CONTRACEPTIVE DEVICE EXPELLED [None]
  - LIBIDO DECREASED [None]
  - MOOD SWINGS [None]
  - NAUSEA [None]
  - UTERINE SPASM [None]
  - VAGINAL HAEMORRHAGE [None]
  - WEIGHT INCREASED [None]
